FAERS Safety Report 7512800-X (Version None)
Quarter: 2011Q2

REPORT INFORMATION
  Report Type: 
  Country: None (occurrence: None)
  Receive Date: 20110531
  Receipt Date: 20110523
  Transmission Date: 20111010
  Serious: Yes (Other)
  Sender: FDA-Public Use
  Company Number: B0721997A

PATIENT
  Age: 2 Decade
  Sex: Male

DRUGS (8)
  1. MYSTAN [Concomitant]
     Route: 048
  2. LAMICTAL [Suspect]
     Indication: EPILEPSY
     Route: 065
  3. ALEVIATIN [Concomitant]
     Route: 048
  4. ALEVIATIN [Concomitant]
     Route: 048
  5. CLONAZEPAM [Concomitant]
     Route: 048
  6. LAMICTAL [Suspect]
     Route: 065
  7. TEGRETOL [Concomitant]
     Route: 048
  8. TEGRETOL [Concomitant]
     Route: 048

REACTIONS (2)
  - SALIVARY HYPERSECRETION [None]
  - LOSS OF CONSCIOUSNESS [None]
